FAERS Safety Report 20430137 (Version 1)
Quarter: 2022Q1

REPORT INFORMATION
  Report Type: Spontaneous
  Country: US (occurrence: US)
  Receive Date: 20220204
  Receipt Date: 20220204
  Transmission Date: 20220423
  Serious: Yes (Life-Threatening, Hospitalization, Other)
  Sender: FDA-Public Use
  Company Number: US-MLMSERVICE-20220125-3334665-1

PATIENT
  Age: 75 Year
  Sex: Male

DRUGS (3)
  1. PROPOFOL [Suspect]
     Active Substance: PROPOFOL
     Indication: Sedation
     Dosage: BOLUSES OF 10 MG-20 MG.
     Route: 065
  2. AMPICILLIN [Concomitant]
     Active Substance: AMPICILLIN
     Indication: Enterococcal bacteraemia
     Dosage: UNKNOWN
     Route: 065
  3. OXYGEN [Concomitant]
     Active Substance: OXYGEN
     Indication: Oxygen therapy
     Dosage: UNKNOWN; VIA FACE MASK
     Route: 055

REACTIONS (6)
  - Bradycardia [Unknown]
  - Ventricular fibrillation [Unknown]
  - Pulseless electrical activity [Unknown]
  - Hypotension [Unknown]
  - Acute right ventricular failure [Unknown]
  - Cardiac arrest [Unknown]
